FAERS Safety Report 21451677 (Version 1)
Quarter: 2022Q4

REPORT INFORMATION
  Report Type: Spontaneous
  Country: JP (occurrence: JP)
  Receive Date: 20221013
  Receipt Date: 20221013
  Transmission Date: 20230112
  Serious: Yes (Hospitalization, Other)
  Sender: FDA-Public Use
  Company Number: JP-BRISTOL-MYERS SQUIBB COMPANY-2022-119391

PATIENT
  Age: 78 Year
  Sex: Male

DRUGS (1)
  1. NIVOLUMAB [Suspect]
     Active Substance: NIVOLUMAB
     Indication: Non-small cell lung cancer recurrent
     Dosage: 3MG/KG/DAY(2018/8/8,2018,9/5)
     Route: 041
     Dates: start: 20180808, end: 20180905

REACTIONS (7)
  - Vasculitis [Recovering/Resolving]
  - Renal disorder [Unknown]
  - Non-small cell lung cancer [Unknown]
  - Cellulitis [Unknown]
  - Rash [Recovering/Resolving]
  - Pyrexia [Unknown]
  - Arthralgia [Recovering/Resolving]

NARRATIVE: CASE EVENT DATE: 20180919
